FAERS Safety Report 6256818-6 (Version None)
Quarter: 2009Q3

REPORT INFORMATION
  Report Type: 
  Country: None (occurrence: None)
  Receive Date: 20090706
  Receipt Date: 20090623
  Transmission Date: 20100115
  Serious: Yes (Other)
  Sender: FDA-Public Use
  Company Number: PHHY2009BR26317

PATIENT
  Sex: Male
  Weight: 100 kg

DRUGS (3)
  1. FLOTAC [Suspect]
     Indication: TENDON PAIN
     Dosage: 1 DF, Q12H
     Route: 048
     Dates: start: 20080601
  2. FLOTAC [Suspect]
     Dosage: 1 DF, UNK
     Route: 048
     Dates: start: 20090621
  3. ORMIGREIN [Concomitant]
     Indication: HEADACHE
     Dosage: 1 DF, UNK
     Dates: start: 20090622

REACTIONS (5)
  - BEDRIDDEN [None]
  - BONE PAIN [None]
  - DIZZINESS [None]
  - HEADACHE [None]
  - LABYRINTHITIS [None]
